FAERS Safety Report 17301850 (Version 6)
Quarter: 2020Q4

REPORT INFORMATION
  Report Type: Report from Study
  Country: US (occurrence: US)
  Receive Date: 20200122
  Receipt Date: 20201111
  Transmission Date: 20210113
  Serious: Yes (Other)
  Sender: FDA-Public Use
  Company Number: NVSC2020US012779

PATIENT
  Age: 68 Year
  Sex: Male

DRUGS (1)
  1. ENTRESTO [Suspect]
     Active Substance: SACUBITRIL\VALSARTAN
     Indication: CARDIAC FAILURE
     Dosage: 1 DF (SACUBITRIL 24 MG,VALSARTAN 26 MG), BID
     Route: 048
     Dates: start: 201911

REACTIONS (8)
  - Nasopharyngitis [Recovering/Resolving]
  - Fall [Recovering/Resolving]
  - Hypotension [Unknown]
  - Blood potassium increased [Unknown]
  - Blood potassium decreased [Unknown]
  - Chest injury [Recovering/Resolving]
  - Memory impairment [Unknown]
  - Asthenia [Unknown]

NARRATIVE: CASE EVENT DATE: 201912
